FAERS Safety Report 5895473-1 (Version None)
Quarter: 2008Q3

REPORT INFORMATION
  Report Type: 
  Country: None (occurrence: None)
  Receive Date: 20080924
  Receipt Date: 20080924
  Transmission Date: 20090109
  Serious: Yes (Other)
  Sender: FDA-Public Use
  Company Number: A0748930A

PATIENT
  Age: 60 Year
  Sex: Female

DRUGS (3)
  1. ALLI [Suspect]
     Indication: DRUG USE FOR UNKNOWN INDICATION
     Route: 048
  2. PAIN MEDICATIONS [Suspect]
  3. PAIN MEDICATIONS [Concomitant]

REACTIONS (3)
  - FOOT FRACTURE [None]
  - JOINT DISLOCATION [None]
  - MALAISE [None]
